FAERS Safety Report 7042347-9 (Version None)
Quarter: 2010Q4

REPORT INFORMATION
  Report Type: 
  Country: None (occurrence: None)
  Receive Date: 20101013
  Receipt Date: 20100312
  Transmission Date: 20110411
  Serious: No
  Sender: FDA-Public Use
  Company Number: US-ASTRAZENECA-2010SE10932

PATIENT

DRUGS (2)
  1. SYMBICORT [Suspect]
     Dosage: 160/4.5
     Route: 055
  2. SYMBICORT [Suspect]
     Dosage: 80/4.5
     Route: 055

REACTIONS (1)
  - OROPHARYNGEAL PAIN [None]
